FAERS Safety Report 6141990-9 (Version None)
Quarter: 2009Q2

REPORT INFORMATION
  Report Type: 
  Country: None (occurrence: None)
  Receive Date: 20090402
  Receipt Date: 20090325
  Transmission Date: 20091009
  Serious: Yes (Hospitalization, Other)
  Sender: FDA-Public Use
  Company Number: PHEH2009US02995

PATIENT
  Sex: Male

DRUGS (2)
  1. CLOZAPINE [Suspect]
     Indication: SCHIZOAFFECTIVE DISORDER
     Dosage: 400 MG, QHS
     Route: 048
     Dates: start: 19940101, end: 20081226
  2. CLOZAPINE [Suspect]
     Dosage: 400 MG, QHS
     Dates: start: 20090317

REACTIONS (7)
  - COLON CANCER [None]
  - CONFUSIONAL STATE [None]
  - INTESTINAL OBSTRUCTION [None]
  - LEUKOPENIA [None]
  - NEUTROPHIL COUNT DECREASED [None]
  - PSYCHOTIC BEHAVIOUR [None]
  - WHITE BLOOD CELL COUNT DECREASED [None]
